FAERS Safety Report 5103341-8 (Version None)
Quarter: 2006Q3

REPORT INFORMATION
  Report Type: 
  Country: None (occurrence: None)
  Receive Date: 20060908
  Receipt Date: 20060824
  Transmission Date: 20061208
  Serious: Yes (Hospitalization, Other)
  Sender: FDA-Public Use
  Company Number: 2006AL002501

PATIENT
  Age: 54 Year
  Sex: Male

DRUGS (5)
  1. METFORMIN HYDROCHLORIDE TABLETS, 500 MG (PUREPAC) [Suspect]
     Indication: DIABETES MELLITUS
     Dosage: 500 MG;TID;PO
     Route: 048
     Dates: end: 20060612
  2. ROSIGLITAZONE [Concomitant]
  3. AMLODIPINE [Concomitant]
  4. GLICLAZIDE [Concomitant]
  5. LISINOPRIL [Concomitant]

REACTIONS (1)
  - DIARRHOEA [None]
